FAERS Safety Report 15209438 (Version 7)
Quarter: 2019Q1

REPORT INFORMATION
  Report Type: Spontaneous
  Country: GB (occurrence: GB)
  Receive Date: 20180727
  Receipt Date: 20190329
  Transmission Date: 20190417
  Serious: Yes (Other)
  Sender: FDA-Public Use
  Company Number: GB-MYLANLABS-2018M1056326

PATIENT
  Age: 17 Year
  Sex: Female

DRUGS (17)
  1. ETOPOSIDE. [Suspect]
     Active Substance: ETOPOSIDE
     Indication: BONE MARROW CONDITIONING REGIMEN
     Dosage: 100 MG/M2, 1X/DAY (DAY 1, THREE COURSES)
     Route: 042
  2. ETOPOSIDE. [Suspect]
     Active Substance: ETOPOSIDE
     Indication: HODGKIN^S DISEASE STAGE IV
  3. MELPHALAN. [Suspect]
     Active Substance: MELPHALAN
     Indication: BONE MARROW CONDITIONING REGIMEN
     Dosage: 3 MILLIGRAM/KILOGRAM
  4. VINBLASTINE [Suspect]
     Active Substance: VINBLASTINE
     Indication: HODGKIN^S DISEASE STAGE IV
     Dosage: 6 MG/M2, CYCLIC (6 MG/M2,QCY; MAX 10 MG; DAY 8)
     Route: 065
  5. VINCRISTINE SULFATE. [Suspect]
     Active Substance: VINCRISTINE SULFATE
     Dosage: 6 MG/M2, CYCLIC, (DAY 15, THREE COURSES, MAX 10 MG)
     Route: 065
  6. ETOPOSIDE. [Suspect]
     Active Substance: ETOPOSIDE
     Indication: BONE MARROW CONDITIONING REGIMEN
     Dosage: 200 MG/M2, CYCLIC, (DAY 2,3, THREE COURSES)
     Route: 048
  7. PREDNISONE. [Suspect]
     Active Substance: PREDNISONE
     Indication: HODGKIN^S DISEASE STAGE IV
     Dosage: UNK
  8. VINCRISTINE SULFATE. [Suspect]
     Active Substance: VINCRISTINE SULFATE
     Indication: HODGKIN^S DISEASE STAGE IV
     Dosage: 2 MG, CYCLIC, (DAY 1, THREE COURSES)
     Route: 065
  9. PROCARBAZINE [Suspect]
     Active Substance: PROCARBAZINE
     Indication: HODGKIN^S DISEASE STAGE IV
     Dosage: 100 MG/M2, CYCLIC,(100 MG/M2,QCY; DAY 1-14)
  10. ADRIAMYCIN [Suspect]
     Active Substance: DOXORUBICIN HYDROCHLORIDE
     Indication: HODGKIN^S DISEASE STAGE IV
     Dosage: 25 MILLIGRAM/SQ. METER (25 MG/M2; DAY 8)
  11. PREDNISOLONE. [Suspect]
     Active Substance: PREDNISOLONE
     Indication: HODGKIN^S DISEASE STAGE IV
     Dosage: 40 MG, DAILY (DAY 14-28, THREE COURSES)
  12. BLEOMYCIN [Suspect]
     Active Substance: BLEOMYCIN SULFATE
     Indication: HODGKIN^S DISEASE STAGE IV
     Dosage: 6 MG/M2, CYCLIC, (6 MG/M2,QCY; MAX 10 MG; DAY 15)
     Route: 065
  13. ETOPOSIDE. [Suspect]
     Active Substance: ETOPOSIDE
     Indication: HODGKIN^S DISEASE STAGE IV
     Dosage: 200 MG/M2, QD, 100 MG/M2, 1X/DAY (DAY 1,THREE COURSES)
     Route: 048
  14. CHLORAMBUCIL [Suspect]
     Active Substance: CHLORAMBUCIL
     Indication: HODGKIN^S DISEASE STAGE IV
     Dosage: 6 MG/M2, CYCLIC, (6 MG/M2,QCY; DAY 1-14; MAX 10 MG)
  15. ETOPOSIDE. [Suspect]
     Active Substance: ETOPOSIDE
     Dosage: 1600 MILLIGRAM/SQ. METER
  16. BLEOMYCIN [Suspect]
     Active Substance: BLEOMYCIN SULFATE
     Dosage: 6 MG/M2, CYCLIC, (6 MG/M2,QCY; MAX 10 MG; DAY 22)
     Route: 065
  17. DOXORUBICIN [Suspect]
     Active Substance: DOXORUBICIN
     Indication: HODGKIN^S DISEASE STAGE IV
     Dosage: 25 MG/M2, CYCLIC,(DAY 8,THREE COURSES)

REACTIONS (3)
  - Chronic myeloid leukaemia [Not Recovered/Not Resolved]
  - Second primary malignancy [Unknown]
  - Leukaemia [Unknown]
